FAERS Safety Report 5119816-1 (Version None)
Quarter: 2006Q4

REPORT INFORMATION
  Report Type: 
  Country: None (occurrence: None)
  Receive Date: 20061003
  Receipt Date: 20060529
  Transmission Date: 20070319
  Serious: Yes (Death)
  Sender: FDA-Public Use
  Company Number: FR-PURDUE-GBR_2006_0002316

PATIENT
  Age: 75 Year
  Sex: Female

DRUGS (8)
  1. OXYCONTIN [Suspect]
     Indication: CANCER PAIN
     Dosage: 80 MG, DAILY
     Route: 048
     Dates: start: 20060101, end: 20060101
  2. OXYCONTIN [Suspect]
     Dosage: 60 MG, DAILY
     Route: 048
     Dates: start: 20060101, end: 20060515
  3. OXYCONTIN [Suspect]
     Dosage: 120 MG, DAILY
     Route: 048
     Dates: start: 20060414
  4. NEURONTIN [Concomitant]
     Indication: DRUG USE FOR UNKNOWN INDICATION
     Dosage: 300 UNK, UNK
     Route: 065
     Dates: start: 20060414, end: 20060418
  5. NEURONTIN [Concomitant]
     Dosage: 600 MG, DAILY
     Route: 065
     Dates: start: 20060418
  6. SOLUPRED [Concomitant]
     Indication: DRUG USE FOR UNKNOWN INDICATION
     Dosage: 40 MG, DAILY
     Route: 065
     Dates: start: 20060414
  7. OXYNORM CAPSULES [Suspect]
     Indication: CANCER PAIN
     Route: 048
     Dates: end: 20060515
  8. OXYNORM CAPSULES [Suspect]
     Dosage: 10 MG, PRN
     Route: 048
     Dates: start: 20060414

REACTIONS (2)
  - LOSS OF CONSCIOUSNESS [None]
  - MALIGNANT NEOPLASM PROGRESSION [None]
